FAERS Safety Report 9469712 (Version 3)
Quarter: 2013Q4

REPORT INFORMATION
  Report Type: Spontaneous
  Country: US (occurrence: US)
  Receive Date: 20130822
  Receipt Date: 20131003
  Transmission Date: 20140711
  Serious: Yes (Other)
  Sender: FDA-Public Use
  Company Number: PHEH2013US017488

PATIENT
  Age: 66 Year
  Sex: Female
  Weight: 92 kg

DRUGS (4)
  1. VIVELLE DOT [Suspect]
     Indication: HOT FLUSH
     Dosage: 0.025 MG, DAY
     Dates: start: 20120411
  2. VIVELLE DOT [Suspect]
     Dosage: 0.025 MG, QW2
     Dates: end: 20120524
  3. VIVELLE DOT [Suspect]
     Dosage: 0.375 MG, QW2
     Route: 062
     Dates: start: 20120524
  4. VIVELLE DOT [Suspect]
     Dosage: UNK UKN, UNK
     Route: 062

REACTIONS (4)
  - Vaginal infection [Recovered/Resolved]
  - Breast cyst [Unknown]
  - Pain [Unknown]
  - Hot flush [Recovered/Resolved]
